FAERS Safety Report 5862433-6 (Version None)
Quarter: 2008Q3

REPORT INFORMATION
  Report Type: 
  Country: None (occurrence: None)
  Receive Date: 20080826
  Receipt Date: 20080818
  Transmission Date: 20090109
  Serious: Yes (Hospitalization)
  Sender: FDA-Public Use
  Company Number: 6045009

PATIENT
  Age: 64 Year
  Sex: Male

DRUGS (18)
  1. BISOPROLOL FUMARATE [Suspect]
     Indication: HYPERTENSION
     Dosage: 2.5 MG (2.5 MG, 1 IN 1 D) ORAL
     Route: 048
     Dates: end: 20080717
  2. CEPHALEXIN [Suspect]
     Indication: URINARY TRACT INFECTION
     Dosage: 1500 MG (500 MG, 3 IN 1 D) ORAL
     Route: 048
     Dates: start: 20080707, end: 20080714
  3. ALPHOSYL HC (HYDROCORTISONE, ALLANTOIN, COAL TAR, PREPARED) [Concomitant]
  4. ASPIRIN [Concomitant]
  5. BETAMETHASONE [Concomitant]
  6. BISOPROLOL FUMARATE [Concomitant]
  7. CALCIPOTRIOL (CALCIPOTRIOL) [Concomitant]
  8. CETIRIZINE HCL [Concomitant]
  9. DIPROBASE (PARAFFIN SOFT) [Concomitant]
  10. HYDROCORTISONE TAB [Concomitant]
  11. ISPAGHULA (PLANTAGO OVATA) [Concomitant]
  12. MACROGOL (MACROGOL) [Concomitant]
  13. MANEVAC (SENNA ALEXANDRINA, PLANTAGO OVATA) [Concomitant]
  14. MICONAZOLE [Concomitant]
  15. PRAGMATAR (SALICYLIC ACID, SULFUR, COAL TAR, CETYL ALCOHOL) [Concomitant]
  16. SIMVASTATIN [Concomitant]
  17. TOLTERODINE TARTRATE [Concomitant]
  18. ZOPICLONE (ZOPICLONE) [Concomitant]

REACTIONS (6)
  - DISEASE RECURRENCE [None]
  - LOSS OF CONSCIOUSNESS [None]
  - RASH GENERALISED [None]
  - RASH MACULAR [None]
  - RASH PRURITIC [None]
  - URINARY TRACT INFECTION [None]
